FAERS Safety Report 5978253-8 (Version None)
Quarter: 2008Q4

REPORT INFORMATION
  Report Type: 
  Country: None (occurrence: None)
  Receive Date: 20081204
  Receipt Date: 20081201
  Transmission Date: 20090506
  Serious: Yes (Death, Life-Threatening, Hospitalization)
  Sender: FDA-Public Use
  Company Number: BG-BAYER-200712526GDS

PATIENT
  Age: 76 Year
  Sex: Male
  Weight: 75 kg

DRUGS (11)
  1. SORAFENIB [Suspect]
     Indication: HEPATIC NEOPLASM MALIGNANT
     Dosage: TOTAL DAILY DOSE: 800 MG
     Route: 048
     Dates: start: 20070417, end: 20070425
  2. SORAFENIB [Suspect]
     Dosage: TOTAL DAILY DOSE: 800 MG
     Route: 048
     Dates: start: 20070508, end: 20070517
  3. SPIRONOLACTONE [Concomitant]
     Indication: MYOCARDIAL ISCHAEMIA
     Route: 048
     Dates: start: 20020101, end: 20070426
  4. DIGOXIN [Concomitant]
     Indication: MYOCARDIAL ISCHAEMIA
     Route: 048
     Dates: start: 20001001, end: 20070426
  5. FURANTRIL [Concomitant]
     Indication: MYOCARDIAL ISCHAEMIA
     Route: 048
     Dates: start: 20020101, end: 20070426
  6. SINTROM [Concomitant]
     Indication: MYOCARDIAL ISCHAEMIA
     Route: 048
     Dates: start: 20001001, end: 20070426
  7. KARDIKET [Concomitant]
     Indication: MYOCARDIAL ISCHAEMIA
     Route: 065
     Dates: start: 20001001, end: 20070426
  8. AGAPURIN [Concomitant]
     Indication: CEREBRAL ISCHAEMIA
     Route: 065
     Dates: start: 19990201, end: 20070426
  9. NEUROBEX [Concomitant]
     Indication: NEUROPATHY PERIPHERAL
     Route: 065
     Dates: start: 20070301, end: 20070426
  10. PYRAMEM [Concomitant]
     Indication: CEREBRAL ISCHAEMIA
     Dosage: TOTAL DAILY DOSE: 2400 MG
     Route: 065
     Dates: start: 20070505, end: 20070517
  11. NEUROTOP RETARD [Concomitant]
     Indication: BONE PAIN
     Dosage: TOTAL DAILY DOSE: 600 MG
     Route: 065
     Dates: start: 20070505, end: 20070517

REACTIONS (3)
  - CEREBRAL ISCHAEMIA [None]
  - CEREBROVASCULAR ACCIDENT [None]
  - HEPATIC NEOPLASM MALIGNANT [None]
